FAERS Safety Report 23409245 (Version 1)
Quarter: 2024Q1

REPORT INFORMATION
  Report Type: Other
  Country: None (occurrence: IT)
  Receive Date: 20240117
  Receipt Date: 20240117
  Transmission Date: 20240409
  Serious: Yes (Hospitalization, Other)
  Sender: FDA-Public Use
  Company Number: IT-Caplin Steriles Limited-2151400

PATIENT
  Age: 50 Year
  Sex: Male

DRUGS (2)
  1. SODIUM NITROPRUSSIDE [Suspect]
     Active Substance: SODIUM NITROPRUSSIDE
     Indication: Pulmonary hypertension
     Route: 042
  2. EPINEPHRINE [Concomitant]
     Active Substance: EPINEPHRINE
     Route: 042

REACTIONS (3)
  - Arrhythmia [Recovering/Resolving]
  - Toxicity to various agents [Recovering/Resolving]
  - Ventricular tachycardia [Recovering/Resolving]
